FAERS Safety Report 23792259 (Version 1)
Quarter: 2024Q2

REPORT INFORMATION
  Report Type: Spontaneous
  Country: CN (occurrence: CN)
  Receive Date: 20240429
  Receipt Date: 20240429
  Transmission Date: 20240715
  Serious: Yes (Hospitalization, Other)
  Sender: FDA-Public Use
  Company Number: CN-AMGEN-CHNSP2024080967

PATIENT
  Age: 6 Year
  Sex: Female

DRUGS (4)
  1. BLINCYTO [Suspect]
     Active Substance: BLINATUMOMAB
     Indication: Acute lymphocytic leukaemia
     Dosage: 4.135 MICROGRAM, DRIP
     Route: 042
     Dates: start: 20240404, end: 20240405
  2. BLINCYTO [Suspect]
     Active Substance: BLINATUMOMAB
     Dosage: 8.27 MICROGRAM, DRIP
     Route: 042
     Dates: start: 20240405, end: 20240406
  3. BLINCYTO [Suspect]
     Active Substance: BLINATUMOMAB
     Dosage: 12.405 MICROGRAM, DRIP
     Route: 042
     Dates: start: 20240407, end: 20240410
  4. BLINCYTO [Suspect]
     Active Substance: BLINATUMOMAB
     Dosage: UNK, DRIP
     Route: 042
     Dates: start: 20240413

REACTIONS (1)
  - Myalgia [Recovering/Resolving]

NARRATIVE: CASE EVENT DATE: 20240404
